FAERS Safety Report 8559662 (Version 2)
Quarter: 2012Q4

REPORT INFORMATION
  Report Type: 
  Country: US (occurrence: US)
  Receive Date: 20120514
  Receipt Date: 20121101
  Transmission Date: 20130627
  Serious: Yes (Hospitalization)
  Sender: FDA-Public Use
  Company Number: US-BAYER-2012-046339

PATIENT
  Age: 20 Year
  Sex: Female

DRUGS (9)
  1. YASMIN [Suspect]
  2. AUGMENTIN [Concomitant]
     Indication: CELLULITIS
     Dosage: UNK
     Dates: start: 20110709
  3. TYLENOL #3 [Concomitant]
     Indication: CELLULITIS
     Dosage: UNK
     Dates: start: 20110709
  4. UNASYN [Concomitant]
     Indication: CELLULITIS
     Dosage: UNK
     Dates: start: 20110709
  5. CEFAZOLIN [Concomitant]
     Indication: CELLULITIS
     Route: 042
  6. VANCOMYCIN [Concomitant]
     Indication: CELLULITIS
  7. MORPHINE [Concomitant]
     Indication: CELLULITIS
  8. MONISTAT [Concomitant]
     Indication: YEAST INFECTION
  9. DIFLUCAN [Concomitant]
     Indication: YEAST INFECTION

REACTIONS (7)
  - Deep vein thrombosis [None]
  - Injury [None]
  - Pain [None]
  - Quality of life decreased [None]
  - Anxiety [None]
  - Anhedonia [None]
  - Fear [None]
